FAERS Safety Report 25764707 (Version 2)
Quarter: 2025Q3

REPORT INFORMATION
  Report Type: Report from Study
  Country: US (occurrence: US)
  Receive Date: 20250905
  Receipt Date: 20250917
  Transmission Date: 20251020
  Serious: No
  Sender: SUNOVION
  Company Number: US-SUMITOMO PHARMA SWITZERLAND GMBH-2025SPA011071

PATIENT
  Age: 80 Year
  Sex: Male

DRUGS (9)
  1. ORGOVYX [Suspect]
     Active Substance: RELUGOLIX
     Indication: Prostate cancer
     Route: 048
  2. ORGOVYX [Suspect]
     Active Substance: RELUGOLIX
     Route: 048
  3. GLIPIZIDE XL [Concomitant]
     Active Substance: GLIPIZIDE
  4. LOVASTATIN [Concomitant]
     Active Substance: LOVASTATIN
  5. METOPROLOL TARTRATE [Concomitant]
     Active Substance: METOPROLOL TARTRATE
  6. SEMAGLUTIDE [Concomitant]
     Active Substance: SEMAGLUTIDE
  7. TAMSULOSIN [Concomitant]
     Active Substance: TAMSULOSIN
  8. TYLENOL [Concomitant]
     Active Substance: ACETAMINOPHEN
  9. ADVIL [Concomitant]
     Active Substance: IBUPROFEN

REACTIONS (5)
  - Ear haemorrhage [Unknown]
  - Peripheral coldness [Recovered/Resolved]
  - Muscle fatigue [Unknown]
  - Pain in extremity [Recovered/Resolved]
  - Heart rate increased [Recovered/Resolved]
